FAERS Safety Report 5701916-6 (Version None)
Quarter: 2008Q2

REPORT INFORMATION
  Report Type: 
  Country: None (occurrence: None)
  Receive Date: 20080411
  Receipt Date: 20080403
  Transmission Date: 20081010
  Serious: Yes (Other)
  Sender: FDA-Public Use
  Company Number: PHEH2008US02674

PATIENT
  Age: 58 Year
  Sex: Male
  Weight: 81.632 kg

DRUGS (30)
  1. DIOVAN [Suspect]
     Indication: PROTEINURIA
     Dosage: 160MG, QD
     Route: 048
     Dates: start: 20060814, end: 20061228
  2. CALCIUM MAGNESIUM ZINC [Concomitant]
     Dosage: 100/600/15 X 2 PER DAY
  3. SKELAXIN [Concomitant]
     Dosage: 800 MG, PRN 1-3 TIMES/DAY
  4. NIACIN [Concomitant]
     Dosage: 500 MG, TID
  5. ASPIRIN [Concomitant]
     Dosage: 325 MG, QD
  6. ASPIRIN [Concomitant]
     Dosage: 325 MG, PRN
  7. VITAMIN B COMPLEX CAP [Concomitant]
     Dosage: 1 PER DAY
  8. SPIRULINA [Concomitant]
     Dosage: 4-6 TABLETS, QD
  9. FOLIC ACID [Concomitant]
     Dosage: 400 UG, QD
  10. ASCORBIC ACID [Concomitant]
     Dosage: 500 MG, QD
  11. MOTRIN [Concomitant]
     Dosage: 200 MG, PRN
  12. ZANTAC [Concomitant]
     Dosage: UNK, PRN
  13. IMODIUM [Concomitant]
     Dosage: UNK, PRN
  14. ALKA-SELTZER PLUS [Concomitant]
     Dosage: UNK, PRN
  15. POTASSIUM CHLORIDE [Concomitant]
  16. COLESTID [Concomitant]
     Dosage: 1 G, UNK
  17. NORFLEX [Concomitant]
     Dosage: 100 MG, PRN
  18. ZESTRIL [Concomitant]
     Dosage: 40 MG, QD
  19. HYDROCHLOROTHIAZIDE [Concomitant]
     Dosage: 25 MG, QD
  20. TENORMIN [Concomitant]
     Dosage: 150 MG, QD
  21. SYNTHROID [Concomitant]
     Dosage: 88 UG, QD
  22. PROSOM [Concomitant]
     Dosage: 1/2-1 TABLET, PRN
  23. AMBIEN [Concomitant]
     Dosage: 10 MG, QD
  24. HYDROCODONE BITARTRATE AND ACETAMINOPHEN [Concomitant]
     Dosage: 10/360 MG, PRN
  25. TESTOSTERONE [Concomitant]
     Dosage: 1.5 ML, QW2
  26. VIAGRA [Concomitant]
  27. LEVITRA [Concomitant]
  28. LEVEMIR [Concomitant]
     Dosage: 8-9 UNITS, BID
  29. INSULIN [Concomitant]
     Dosage: SSI +1
  30. LOTREL [Suspect]

REACTIONS (3)
  - DRUG HYPERSENSITIVITY [None]
  - JOINT INJURY [None]
  - NERVE INJURY [None]
